FAERS Safety Report 4286289-0 (Version None)
Quarter: 2004Q1

REPORT INFORMATION
  Report Type: 
  Country: None (occurrence: None)
  Receive Date: 20040129
  Receipt Date: 20030925
  Transmission Date: 20041129
  Serious: Yes (Hospitalization)
  Sender: FDA-Public Use
  Company Number: A001-002-005804

PATIENT
  Age: 94 Year
  Sex: Female

DRUGS (5)
  1. ARICEPT [Suspect]
     Indication: DEMENTIA
     Dosage: 5 MG, 1 IN 1 D, ORAL
     Route: 048
  2. METHOTREXATE [Concomitant]
  3. GLUCOTROL [Concomitant]
  4. ZESTRIL [Concomitant]
  5. FERGON (FERROUS GLUCONATE) [Concomitant]

REACTIONS (3)
  - FAECAL INCONTINENCE [None]
  - FLATULENCE [None]
  - GASTROINTESTINAL HAEMORRHAGE [None]
